FAERS Safety Report 9501134 (Version 1)
Quarter: 2013Q1

REPORT INFORMATION
  Report Type: Spontaneous
  Country: US (occurrence: None)
  Receive Date: 20130107
  Receipt Date: 20130107
  Transmission Date: 20140127
  Serious: No
  Sender: FDA-Public Use
  Company Number: PHEH2012US017747

PATIENT
  Age: 45 Year
  Sex: Female

DRUGS (4)
  1. GILENYA (FTY)CAPSULE, 0.5MG [Suspect]
     Indication: MULTIPLE SCLEROSIS
     Route: 048
     Dates: start: 201206
  2. GABPENTIN (GABAPENTIN)CAPSULE [Concomitant]
  3. LAMICTAL (LAMOTRIGINE) [Concomitant]
  4. TOPAMAX (TOPIRAMATE) [Concomitant]

REACTIONS (3)
  - Tremor [None]
  - Gait disturbance [None]
  - Dizziness [None]
